FAERS Safety Report 9959573 (Version 1)
Quarter: 2014Q1

REPORT INFORMATION
  Report Type: Report from Study
  Country: US (occurrence: US)
  Receive Date: 20140305
  Receipt Date: 20140305
  Transmission Date: 20141002
  Serious: No
  Sender: FDA-Public Use
  Company Number: US-ABBVIE-13P-163-1107213-00

PATIENT
  Age: 50 Year
  Sex: Female

DRUGS (3)
  1. HUMIRA [Suspect]
     Indication: COLITIS ULCERATIVE
     Dates: start: 20130430
  2. ZOCOR [Concomitant]
     Indication: BLOOD CHOLESTEROL ABNORMAL
  3. LEXAPRO [Concomitant]
     Indication: DEPRESSION

REACTIONS (1)
  - Injection site bruising [Not Recovered/Not Resolved]
